FAERS Safety Report 24988028 (Version 2)
Quarter: 2025Q1

REPORT INFORMATION
  Report Type: Spontaneous
  Country: FR (occurrence: FR)
  Receive Date: 20250220
  Receipt Date: 20250304
  Transmission Date: 20250408
  Serious: Yes (Hospitalization, Other)
  Sender: ALKEM
  Company Number: None

PATIENT
  Age: 72 Year
  Sex: Male

DRUGS (8)
  1. MYCOPHENOLATE MOFETIL [Suspect]
     Active Substance: MYCOPHENOLATE MOFETIL
     Indication: Immunosuppressant drug therapy
     Dosage: 500 MILLIGRAM, BID (EVERY 12 HOUR)
     Route: 065
  2. TACROLIMUS [Interacting]
     Active Substance: TACROLIMUS
     Indication: Immunosuppressant drug therapy
     Dosage: 1.5 MILLIGRAM, BID (EVERY 12 HOUR) (IMMEDIATE-RELEASE CAPSULES)
     Route: 065
  3. TACROLIMUS [Interacting]
     Active Substance: TACROLIMUS
     Route: 065
  4. TACROLIMUS [Interacting]
     Active Substance: TACROLIMUS
     Dosage: 0.5 MILLIGRAM, BID (REINTRODUCED TABLET ON DAY 15)
     Route: 065
  5. TACROLIMUS [Interacting]
     Active Substance: TACROLIMUS
     Dosage: 1 MILLIGRAM, BID (ON DAY 17)
     Route: 065
  6. TACROLIMUS [Interacting]
     Active Substance: TACROLIMUS
     Route: 065
  7. PAXLOVID [Interacting]
     Active Substance: NIRMATRELVIR\RITONAVIR
     Indication: COVID-19 pneumonia
     Route: 065
  8. VEKLURY [Interacting]
     Active Substance: REMDESIVIR
     Indication: COVID-19 pneumonia
     Route: 065

REACTIONS (13)
  - Hypertensive crisis [Unknown]
  - Thrombotic microangiopathy [Unknown]
  - Hypertensive crisis [Unknown]
  - Neurotoxicity [Unknown]
  - COVID-19 pneumonia [Recovering/Resolving]
  - Renal impairment [Recovered/Resolved]
  - Haematocrit decreased [Recovered/Resolved]
  - Microangiopathy [Unknown]
  - Immunosuppressant drug level increased [Recovered/Resolved]
  - Red blood cell count decreased [Recovered/Resolved]
  - Haematotoxicity [Recovered/Resolved]
  - Drug interaction [Unknown]
  - Overdose [Unknown]
